FAERS Safety Report 4473925-9 (Version None)
Quarter: 2004Q4

REPORT INFORMATION
  Report Type: 
  Country: None (occurrence: None)
  Receive Date: 20041013
  Receipt Date: 20041013
  Transmission Date: 20050328
  Serious: No
  Sender: FDA-Public Use
  Company Number: None

PATIENT
  Sex: Male
  Weight: 90.7194 kg

DRUGS (1)
  1. DEPAKINE 250 MG ONE QID #120 [Suspect]
     Indication: CONVULSION
     Dosage: 1 Q 1D

REACTIONS (1)
  - DRUG INEFFECTIVE [None]
